FAERS Safety Report 24639274 (Version 5)
Quarter: 2025Q3

REPORT INFORMATION
  Report Type: Spontaneous
  Country: US (occurrence: US)
  Receive Date: 20241119
  Receipt Date: 20250917
  Transmission Date: 20251020
  Serious: Yes (Hospitalization, Other)
  Sender: SANOFI AVENTIS
  Company Number: US-SA-2024SA333304

PATIENT
  Age: 77 Year
  Sex: Male

DRUGS (3)
  1. DUPIXENT [Suspect]
     Active Substance: DUPILUMAB
     Indication: Dermatitis atopic
     Route: 058
     Dates: start: 202405, end: 202405
  2. DUPIXENT [Suspect]
     Active Substance: DUPILUMAB
     Indication: Eczema
     Dosage: 300 MG, QOW
     Route: 058
     Dates: start: 2024, end: 202407
  3. DUPIXENT [Suspect]
     Active Substance: DUPILUMAB
     Dosage: 300 MG, QOW
     Route: 058
     Dates: start: 202502, end: 202508

REACTIONS (7)
  - Drug hypersensitivity [Recovered/Resolved]
  - Atrial fibrillation [Recovered/Resolved]
  - Hypotension [Recovered/Resolved]
  - Fatigue [Recovering/Resolving]
  - Rebound eczema [Recovering/Resolving]
  - Dizziness [Recovering/Resolving]
  - Arthralgia [Recovering/Resolving]

NARRATIVE: CASE EVENT DATE: 20240101
